FAERS Safety Report 21070167 (Version 1)
Quarter: 2022Q3

REPORT INFORMATION
  Report Type: Spontaneous
  Country: GB (occurrence: None)
  Receive Date: 20220712
  Receipt Date: 20220712
  Transmission Date: 20221027
  Serious: Yes (Hospitalization, Other)
  Sender: FDA-Public Use
  Company Number: GB-ROCHE-3131223

PATIENT
  Age: 12 Year
  Sex: Female

DRUGS (10)
  1. TOCILIZUMAB [Suspect]
     Active Substance: TOCILIZUMAB
     Indication: Prophylaxis
     Route: 065
  2. TOCILIZUMAB [Suspect]
     Active Substance: TOCILIZUMAB
     Route: 065
  3. CERVARIX [Suspect]
     Active Substance: HUMAN PAPILLOMAVIRUS TYPE 16 L1 CAPSID PROTEIN RESIDUES 2-471 ANTIGEN\HUMAN PAPILLOMAVIRUS TYPE 18 L
     Indication: Prophylaxis
     Route: 065
  4. CERVARIX [Suspect]
     Active Substance: HUMAN PAPILLOMAVIRUS TYPE 16 L1 CAPSID PROTEIN RESIDUES 2-471 ANTIGEN\HUMAN PAPILLOMAVIRUS TYPE 18 L
     Route: 065
     Dates: start: 201010, end: 201010
  5. METHOTREXATE [Suspect]
     Active Substance: METHOTREXATE
     Indication: Prophylaxis
     Route: 065
  6. METHOTREXATE [Suspect]
     Active Substance: METHOTREXATE
     Route: 065
  7. PREDNISOLONE [Suspect]
     Active Substance: PREDNISOLONE
     Indication: Prophylaxis
     Route: 065
  8. PREDNISOLONE [Suspect]
     Active Substance: PREDNISOLONE
     Route: 065
  9. ANAKINRA [Suspect]
     Active Substance: ANAKINRA
     Indication: Prophylaxis
     Route: 065
  10. ANAKINRA [Suspect]
     Active Substance: ANAKINRA
     Route: 065

REACTIONS (18)
  - Fatigue [Unknown]
  - Immobile [Unknown]
  - Joint swelling [Unknown]
  - Cough [Unknown]
  - Pyrexia [Unknown]
  - Arthralgia [Unknown]
  - Somnolence [Unknown]
  - Weight decreased [Unknown]
  - Swelling [Unknown]
  - Pain [Unknown]
  - Juvenile idiopathic arthritis [Unknown]
  - Hyperglycaemia [Unknown]
  - Dyspnoea [Unknown]
  - Pruritus [Unknown]
  - Rash [Unknown]
  - Infection [Unknown]
  - Tonsillitis [Unknown]
  - Off label use [Unknown]
